FAERS Safety Report 14456260 (Version 2)
Quarter: 2018Q2

REPORT INFORMATION
  Report Type: Other
  Country: CA (occurrence: CA)
  Receive Date: 20180130
  Receipt Date: 20180422
  Transmission Date: 20180711
  Serious: Yes (Hospitalization, Other)
  Sender: FDA-Public Use
  Company Number: CA-APOTEX-2018AP005697

PATIENT
  Age: 49 Year
  Sex: Female

DRUGS (2)
  1. ADVAIR HFA [Suspect]
     Active Substance: FLUTICASONE PROPIONATE\SALMETEROL XINAFOATE
     Indication: ASTHMA
     Dosage: UNK, BID
     Route: 065
  2. SALBUTAMOL [Suspect]
     Active Substance: ALBUTEROL
     Indication: ASTHMA
     Dosage: UNK
     Route: 065

REACTIONS (11)
  - Blood cholesterol increased [Unknown]
  - Hypertension [Unknown]
  - Type 2 diabetes mellitus [Unknown]
  - Insomnia [Unknown]
  - Restless legs syndrome [Unknown]
  - Rheumatoid arthritis [Unknown]
  - Migraine [Unknown]
  - Irritable bowel syndrome [Unknown]
  - Asthma [Unknown]
  - Neuropathy peripheral [Unknown]
  - Nasopharyngitis [Unknown]
